FAERS Safety Report 12099269 (Version 2)
Quarter: 2016Q2

REPORT INFORMATION
  Report Type: Spontaneous
  Country: US (occurrence: US)
  Receive Date: 20160222
  Receipt Date: 20160413
  Transmission Date: 20160815
  Serious: Yes (Life-Threatening, Hospitalization, Other)
  Sender: FDA-Public Use
  Company Number: US-ELI_LILLY_AND_COMPANY-US201512004346

PATIENT
  Sex: Female

DRUGS (2)
  1. PROZAC [Suspect]
     Active Substance: FLUOXETINE HYDROCHLORIDE
     Indication: MENOPAUSE
     Dosage: 20 MG, UNKNOWN
     Route: 065
  2. PROZAC [Suspect]
     Active Substance: FLUOXETINE HYDROCHLORIDE
     Dosage: 40 MG, QD
     Route: 065
     Dates: start: 20100813, end: 20100907

REACTIONS (18)
  - Neuropathy peripheral [Not Recovered/Not Resolved]
  - Weight decreased [Recovered/Resolved]
  - Hyperhidrosis [Unknown]
  - Off label use [Unknown]
  - Anxiety [Unknown]
  - Drug dependence [Recovered/Resolved]
  - Paranasal sinus hypersecretion [Unknown]
  - Asthenia [Unknown]
  - Fear [Unknown]
  - Dehydration [Unknown]
  - Confusional state [Unknown]
  - Tooth loss [Unknown]
  - Feeling cold [Unknown]
  - Decreased appetite [Recovered/Resolved]
  - Serotonin syndrome [Recovered/Resolved]
  - Transient ischaemic attack [Unknown]
  - Vomiting [Unknown]
  - Tremor [Recovered/Resolved]

NARRATIVE: CASE EVENT DATE: 2002
